FAERS Safety Report 6386210-5 (Version None)
Quarter: 2009Q3

REPORT INFORMATION
  Report Type: 
  Country: None (occurrence: None)
  Receive Date: 20090929
  Receipt Date: 20090202
  Transmission Date: 20100115
  Serious: Yes (Other)
  Sender: FDA-Public Use
  Company Number: 14468375

PATIENT
  Age: 67 Year
  Sex: Female
  Weight: 148 kg

DRUGS (9)
  1. DEFINITY [Suspect]
     Indication: ECHOCARDIOGRAM
     Dates: start: 20090108
  2. ACTOS [Concomitant]
  3. PREMARIN [Concomitant]
  4. SIMVASTATIN [Concomitant]
  5. MELOXICAM [Concomitant]
  6. TORSEMIDE [Concomitant]
  7. LISINOPRIL [Concomitant]
  8. CARVEDILOL [Concomitant]
  9. HYDROCODONE [Concomitant]

REACTIONS (4)
  - BLOOD PRESSURE DECREASED [None]
  - FLUSHING [None]
  - NAUSEA [None]
  - VISION BLURRED [None]
